FAERS Safety Report 8441577 (Version 4)
Quarter: 2013Q1

REPORT INFORMATION
  Report Type: Spontaneous
  Country: US (occurrence: None)
  Receive Date: 20120223
  Receipt Date: 20121115
  Transmission Date: 20140127
  Serious: Yes (Other)
  Sender: FDA-Public Use
  Company Number: JPI-P-019740

PATIENT
  Age: 60 Year
  Sex: Female
  Weight: 76.2 kg

DRUGS (8)
  1. XYREM [Suspect]
     Dosage: (1.5 GM,2 IN 1 D)
     Route: 048
     Dates: start: 20090803
  2. XYREM [Suspect]
     Dosage: (1.5 GM,2 IN 1 D)
     Route: 048
     Dates: start: 20090803
  3. TRASTUZUMAB [Suspect]
     Dates: start: 20120117
  4. CARBOPLATIN [Suspect]
     Dates: start: 20120117, end: 20120502
  5. DOCETAXEL [Suspect]
     Dates: start: 20120117, end: 20120502
  6. PEGFILGRASTIM [Suspect]
     Dates: start: 20120117, end: 20120502
  7. PRASTERONE [Concomitant]
  8. ESTROGEN [Concomitant]

REACTIONS (5)
  - INFLAMMATORY CARCINOMA OF THE BREAST [None]
  - NAUSEA [None]
  - FATIGUE [None]
  - BLOOD GLUCOSE DECREASED [None]
  - METASTASES TO MUSCLE [None]
